FAERS Safety Report 7048253-8 (Version None)
Quarter: 2010Q4

REPORT INFORMATION
  Report Type: 
  Country: None (occurrence: None)
  Receive Date: 20101014
  Receipt Date: 20101014
  Transmission Date: 20110411
  Serious: No
  Sender: FDA-Public Use
  Company Number: None

PATIENT
  Sex: Female
  Weight: 72.5755 kg

DRUGS (1)
  1. FERRLECIT 62.5MG/5ML SANOFI AVENTIS [Suspect]
     Indication: ANAEMIA
     Dosage: 125MG WEEKLY IV DRIP (ONCE)
     Route: 041
     Dates: start: 20101008, end: 20101008

REACTIONS (1)
  - RASH [None]
